FAERS Safety Report 4925936-4 (Version None)
Quarter: 2006Q1

REPORT INFORMATION
  Report Type: 
  Country: None (occurrence: None)
  Receive Date: 20060228
  Receipt Date: 20050418
  Transmission Date: 20060701
  Serious: No
  Sender: FDA-Public Use
  Company Number: US-GLAXOSMITHKLINE-A0554527A

PATIENT
  Age: 37 Year
  Sex: Female

DRUGS (6)
  1. LAMICTAL [Suspect]
     Indication: BIPOLAR DISORDER
     Dosage: 25MG PER DAY
     Route: 048
     Dates: start: 20050201, end: 20050401
  2. TEGRETOL [Concomitant]
  3. LITHIUM [Concomitant]
  4. ZYPREXA [Concomitant]
  5. AMBIEN [Concomitant]
  6. ATIVAN [Concomitant]

REACTIONS (2)
  - NEUTROPHIL COUNT DECREASED [None]
  - RASH [None]
